FAERS Safety Report 10663646 (Version 1)
Quarter: 2014Q4

REPORT INFORMATION
  Report Type: Spontaneous
  Country: JP (occurrence: JP)
  Receive Date: 20141219
  Receipt Date: 20141219
  Transmission Date: 20150529
  Serious: Yes (Other)
  Sender: FDA-Public Use
  Company Number: JP-CIPLA LTD.-2014JP02588

PATIENT

DRUGS (5)
  1. CARBOPLATIN. [Suspect]
     Active Substance: CARBOPLATIN
     Indication: NON-SMALL CELL LUNG CANCER
     Dosage: AUC 6.0 MG/ML X MIN, EVERY THREE WEEKS FOR FOUR TO SIX CYCLES
     Route: 042
  2. VITAMIN B12 [Concomitant]
     Active Substance: CYANOCOBALAMIN
     Dosage: 1000 MCG, EVERY NINE WEEKS
  3. BEVACIZUMAB [Suspect]
     Active Substance: BEVACIZUMAB
     Indication: NON-SMALL CELL LUNG CANCER
     Dosage: 15 MG/KG, EVERY THREE WEEKS FOR FOUR TO SIX CYCLES
     Route: 042
  4. FOLIC ACID. [Concomitant]
     Active Substance: FOLIC ACID
     Dosage: 500 MCG, PER DAY
  5. PEMETREXED [Suspect]
     Active Substance: PEMETREXED
     Indication: NON-SMALL CELL LUNG CANCER
     Dosage: 500 MG/M2, EVERY THREE WEEKS FOR FOUR TO SIX CYCLES
     Route: 042

REACTIONS (1)
  - Venous thrombosis [Unknown]
